FAERS Safety Report 5795130-6 (Version None)
Quarter: 2008Q2

REPORT INFORMATION
  Report Type: 
  Country: None (occurrence: None)
  Receive Date: 20080630
  Receipt Date: 20080505
  Transmission Date: 20081010
  Serious: Yes (Life-Threatening, Other)
  Sender: FDA-Public Use
  Company Number: US-BRISTOL-MYERS SQUIBB COMPANY-14171672

PATIENT
  Age: 38 Year
  Sex: Female
  Weight: 82 kg

DRUGS (3)
  1. ORENCIA [Suspect]
     Indication: RHEUMATOID ARTHRITIS
     Route: 041
     Dates: start: 20071011, end: 20071227
  2. SERTRALINE [Concomitant]
  3. TAMOXIFEN [Concomitant]

REACTIONS (1)
  - BREAST CANCER METASTATIC [None]
